FAERS Safety Report 25184044 (Version 1)
Quarter: 2025Q2

REPORT INFORMATION
  Report Type: Spontaneous
  Country: US (occurrence: None)
  Receive Date: 20250409
  Receipt Date: 20250409
  Transmission Date: 20250717
  Serious: No
  Sender: FDA-CTU
  Company Number: None

PATIENT
  Age: 69 Year
  Sex: Female
  Weight: 79.65 kg

DRUGS (6)
  1. REPATHA [Suspect]
     Active Substance: EVOLOCUMAB
     Indication: Hypercholesterolaemia
     Route: 050
     Dates: start: 20241212, end: 20250320
  2. VITAMIN C [Concomitant]
     Active Substance: ASCORBIC ACID
  3. D [Concomitant]
  4. FISH OIL [Concomitant]
     Active Substance: FISH OIL
  5. MAGNESIUM [Concomitant]
     Active Substance: MAGNESIUM
  6. Colace CoQ10 [Concomitant]

REACTIONS (12)
  - Rash pruritic [None]
  - Injection site erythema [None]
  - Rash macular [None]
  - Injection site discolouration [None]
  - Condition aggravated [None]
  - Hypercholesterolaemia [None]
  - Rebound effect [None]
  - Feeling hot [None]
  - Eye pruritus [None]
  - Ocular hyperaemia [None]
  - Pruritus [None]
  - Therapy interrupted [None]

NARRATIVE: CASE EVENT DATE: 20250320
